FAERS Safety Report 9464138 (Version 1)
Quarter: 2013Q3

REPORT INFORMATION
  Report Type: Spontaneous
  Country: US (occurrence: US)
  Receive Date: 20130819
  Receipt Date: 20130819
  Transmission Date: 20140515
  Serious: Yes (Other)
  Sender: FDA-Public Use
  Company Number: US-SANOFI-AVENTIS-2013SA082024

PATIENT
  Sex: Female

DRUGS (1)
  1. MULTAQ [Suspect]
     Route: 065

REACTIONS (5)
  - Pneumonia [Unknown]
  - Vitamin D deficiency [Unknown]
  - Immune system disorder [Unknown]
  - Sinus disorder [Unknown]
  - Adverse event [Unknown]
